FAERS Safety Report 6384002-4 (Version None)
Quarter: 2009Q4

REPORT INFORMATION
  Report Type: 
  Country: None (occurrence: None)
  Receive Date: 20091001
  Receipt Date: 20090922
  Transmission Date: 20100525
  Serious: Yes (Death)
  Sender: FDA-Public Use
  Company Number: PH-PFIZER INC-2009250445

PATIENT

DRUGS (1)
  1. CEFOPERAZONE SODIUM, SULBACTAM SODIUM [Suspect]
     Dosage: 3 G/DAY

REACTIONS (1)
  - CARDIO-RESPIRATORY ARREST [None]
